FAERS Safety Report 8352770-8 (Version None)
Quarter: 2012Q2

REPORT INFORMATION
  Report Type: 
  Country: None (occurrence: None)
  Receive Date: 20120511
  Receipt Date: 20120502
  Transmission Date: 20120825
  Serious: Yes (Death, Other)
  Sender: FDA-Public Use
  Company Number: US-ASTELLAS-2012US001373

PATIENT
  Sex: Male
  Weight: 87 kg

DRUGS (1)
  1. TARCEVA [Suspect]
     Indication: PRODUCT USED FOR UNKNOWN INDICATION
     Dosage: UNK
     Route: 048

REACTIONS (4)
  - DEATH [None]
  - NON-SMALL CELL LUNG CANCER METASTATIC [None]
  - WEIGHT DECREASED [None]
  - VOCAL CORD PARALYSIS [None]
